FAERS Safety Report 5947947-2 (Version None)
Quarter: 2008Q4

REPORT INFORMATION
  Report Type: 
  Country: None (occurrence: None)
  Receive Date: 20081111
  Receipt Date: 20080925
  Transmission Date: 20090506
  Serious: Yes (Other)
  Sender: FDA-Public Use
  Company Number: A0750353A

PATIENT
  Age: 29 Year
  Sex: Female

DRUGS (1)
  1. TREXIMET [Suspect]
     Indication: DRUG USE FOR UNKNOWN INDICATION
     Dosage: 1TAB SEE DOSAGE TEXT
     Route: 048
     Dates: start: 20080917

REACTIONS (2)
  - DIZZINESS [None]
  - RASH [None]
